FAERS Safety Report 8167921-8 (Version None)
Quarter: 2012Q1

REPORT INFORMATION
  Report Type: 
  Country: None (occurrence: None)
  Receive Date: 20120227
  Receipt Date: 20120221
  Transmission Date: 20120608
  Serious: Yes (Death, Hospitalization)
  Sender: FDA-Public Use
  Company Number: US-GLAXOSMITHKLINE-A0915564A

PATIENT
  Age: 73 Year
  Sex: Female
  Weight: 109.1 kg

DRUGS (3)
  1. FOSAMAX [Concomitant]
  2. INSULIN [Concomitant]
  3. AVANDIA [Suspect]
     Indication: DIABETES MELLITUS
     Dosage: 4MG PER DAY
     Route: 048
     Dates: start: 20010401, end: 20071003

REACTIONS (4)
  - HYPERLIPIDAEMIA [None]
  - STATUS EPILEPTICUS [None]
  - CARDIAC FAILURE CONGESTIVE [None]
  - MULTIPLE FRACTURES [None]
